FAERS Safety Report 5508592-6 (Version None)
Quarter: 2007Q4

REPORT INFORMATION
  Report Type: 
  Country: None (occurrence: None)
  Receive Date: 20071107
  Receipt Date: 20071031
  Transmission Date: 20080405
  Serious: Yes (Hospitalization)
  Sender: FDA-Public Use
  Company Number: IT-BAYER-200716563GDS

PATIENT
  Age: 61 Year
  Sex: Male
  Weight: 75 kg

DRUGS (8)
  1. SORAFENIB [Suspect]
     Indication: HEPATIC NEOPLASM MALIGNANT
     Dosage: TOTAL DAILY DOSE: 800 MG
     Route: 048
     Dates: start: 20070927
  2. LASIX [Concomitant]
     Indication: HEPATIC CIRRHOSIS
     Route: 048
     Dates: start: 20070927
  3. ZEFFIX [Concomitant]
     Indication: HEPATITIS B
     Route: 048
  4. KANRENOL [Concomitant]
     Indication: HEPATIC CIRRHOSIS
     Route: 048
     Dates: start: 20070927
  5. PANTOPAN [Concomitant]
     Indication: ABDOMINAL PAIN UPPER
     Route: 048
     Dates: start: 20070927
  6. DEURSIL [Concomitant]
     Indication: HEPATIC CIRRHOSIS
     Route: 048
  7. NORMIX [Concomitant]
     Indication: HEPATIC CIRRHOSIS
     Route: 048
     Dates: start: 20070927, end: 20071007
  8. PLASIL [Concomitant]
     Indication: NAUSEA
     Route: 048
     Dates: start: 20070927

REACTIONS (1)
  - ENCEPHALOPATHY [None]
